FAERS Safety Report 10411795 (Version 1)
Quarter: 2014Q2

REPORT INFORMATION
  Report Type: Spontaneous
  Country: US (occurrence: None)
  Receive Date: 20140530
  Receipt Date: 20140530
  Transmission Date: 20141212
  Serious: Yes (Other)
  Sender: FDA-Public Use
  Company Number: 375021

PATIENT
  Age: 15 Year
  Sex: Male
  Weight: 55.9 kg

DRUGS (2)
  1. NORDITROPIN [Suspect]
     Indication: GROWTH HORMONE DEFICIENCY
     Route: 058
     Dates: start: 201201, end: 20130315
  2. SYNTHROID (LEVOTHYROXINE SODIUM) [Concomitant]

REACTIONS (2)
  - Optic glioma [None]
  - Condition aggravated [None]
